FAERS Safety Report 6448548-2 (Version None)
Quarter: 2009Q4

REPORT INFORMATION
  Report Type: 
  Country: None (occurrence: None)
  Receive Date: 20091120
  Receipt Date: 20091110
  Transmission Date: 20100525
  Serious: Yes (Hospitalization)
  Sender: FDA-Public Use
  Company Number: DE-PFIZER INC-2008091344

PATIENT
  Age: 49 Year
  Sex: Female
  Weight: 58 kg

DRUGS (3)
  1. FESOTERODINE [Suspect]
     Dosage: 8 MG, 1X/DAY
     Route: 048
     Dates: start: 20080930, end: 20081105
  2. L-THYROXIN [Concomitant]
     Route: 048
     Dates: start: 20040101
  3. RUDOTEL [Concomitant]
     Route: 048
     Dates: start: 20080201

REACTIONS (1)
  - PYELONEPHRITIS ACUTE [None]
